FAERS Safety Report 8584699-4 (Version None)
Quarter: 2012Q3

REPORT INFORMATION
  Report Type: 
  Country: None (occurrence: None)
  Receive Date: 20120802
  Receipt Date: 20120802
  Transmission Date: 20120928
  Serious: Yes (Hospitalization)
  Sender: FDA-Public Use
  Company Number: None

PATIENT
  Age: 74 Year
  Sex: Male
  Weight: 62.4 kg

DRUGS (1)
  1. CEFTAZIDIME [Suspect]
     Indication: UPPER RESPIRATORY TRACT INFECTION
     Dosage: 2 GM TID IV
     Route: 042
     Dates: start: 20120728, end: 20120731

REACTIONS (1)
  - RASH [None]
